FAERS Safety Report 4442357-1 (Version None)
Quarter: 2004Q3

REPORT INFORMATION
  Report Type: 
  Country: None (occurrence: None)
  Receive Date: 20040903
  Receipt Date: 20040219
  Transmission Date: 20050211
  Serious: Yes (Other)
  Sender: FDA-Public Use
  Company Number: 2004UW09334

PATIENT
  Age: 48 Year
  Sex: Male

DRUGS (10)
  1. CRESTOR [Suspect]
     Dosage: 10 MG QD PO
     Route: 048
  2. BENICAR [Concomitant]
  3. NIASPAN [Concomitant]
  4. CORAL CALCIUM [Concomitant]
  5. MULTIVITAMIN AND MINERAL SUPPLEMENT [Concomitant]
  6. FISH OIL [Concomitant]
  7. NO MATCH [Concomitant]
  8. VITAMIN B COMPLEX CAP [Concomitant]
  9. COENZYME [Concomitant]
  10. VITAMIN C [Concomitant]

REACTIONS (5)
  - ABDOMINAL PAIN [None]
  - ASTHENIA [None]
  - CHROMATURIA [None]
  - FATIGUE [None]
  - MYALGIA [None]
